FAERS Safety Report 12721565 (Version 1)
Quarter: 2016Q3

REPORT INFORMATION
  Report Type: Other
  Country: US (occurrence: US)
  Receive Date: 20160907
  Receipt Date: 20160907
  Transmission Date: 20161109
  Serious: No
  Sender: FDA-Public Use
  Company Number: US-COL_22157_2016

PATIENT
  Age: 23 Year
  Sex: Female

DRUGS (1)
  1. COLGATE TOTAL ADVANCED WHITENING [Suspect]
     Active Substance: SODIUM FLUORIDE\TRICLOSAN
     Indication: PRODUCT USED FOR UNKNOWN INDICATION
     Dosage: THREE FOURTH OF THE TOOTHBRUSH/TID/
     Route: 048
     Dates: start: 20160215, end: 20160216

REACTIONS (2)
  - Hypoaesthesia oral [Recovering/Resolving]
  - Hypoaesthesia oral [None]

NARRATIVE: CASE EVENT DATE: 20160215
